FAERS Safety Report 20199439 (Version 1)
Quarter: 2021Q4

REPORT INFORMATION
  Report Type: Spontaneous
  Country: US (occurrence: US)
  Receive Date: 20211217
  Receipt Date: 20211217
  Transmission Date: 20220303
  Serious: No
  Sender: FDA-Public Use
  Company Number: US-PACIRA-2021000175

PATIENT
  Sex: Female

DRUGS (4)
  1. EXPAREL [Suspect]
     Active Substance: BUPIVACAINE
     Dosage: 10 ML WITH 10 ML OF 0.25% BUPIVACAINE AS A NERVE BLOCK
     Route: 065
     Dates: start: 20210224, end: 20210224
  2. EXPAREL [Suspect]
     Active Substance: BUPIVACAINE
     Dosage: 20 ML ADMIXED WITH 0.5% BUPIVACAINE AS AN INFILTRATION
     Route: 065
     Dates: start: 20210224, end: 20210224
  3. BUPIVACAINE [Suspect]
     Active Substance: BUPIVACAINE
     Dosage: 10 ML WITH 10 ML OF EXPAREL
     Route: 065
     Dates: start: 20210224, end: 20210224
  4. BUPIVACAINE [Suspect]
     Active Substance: BUPIVACAINE
     Dosage: 0.5% ADMIXED WITH 20 ML OF EXPAREL
     Route: 065
     Dates: start: 20210224, end: 20210224

REACTIONS (1)
  - Overdose [Unknown]

NARRATIVE: CASE EVENT DATE: 20210224
